FAERS Safety Report 20023876 (Version 1)
Quarter: 2021Q4

REPORT INFORMATION
  Report Type: Report from Study
  Country: US (occurrence: US)
  Receive Date: 20211102
  Receipt Date: 20211102
  Transmission Date: 20220303
  Serious: Yes (Hospitalization, Other)
  Sender: FDA-Public Use
  Company Number: US-GLAXOSMITHKLINE-US2021GSK222635

PATIENT
  Age: 39 Year
  Sex: Female

DRUGS (2)
  1. BUPROPION HYDROCHLORIDE [Suspect]
     Active Substance: BUPROPION HYDROCHLORIDE
     Indication: Product used for unknown indication
     Dosage: UNK
  2. FLUOXETINE [Suspect]
     Active Substance: FLUOXETINE HYDROCHLORIDE
     Indication: Product used for unknown indication
     Dosage: UNK

REACTIONS (8)
  - Reversible cerebral vasoconstriction syndrome [Unknown]
  - Thunderclap headache [Unknown]
  - Confusional state [Unknown]
  - Hemiparesis [Unknown]
  - Subarachnoid haemorrhage [Unknown]
  - Cerebral haemorrhage [Unknown]
  - Vasogenic cerebral oedema [Unknown]
  - Angiopathy [Unknown]
